FAERS Safety Report 12614074 (Version 2)
Quarter: 2017Q2

REPORT INFORMATION
  Report Type: Spontaneous
  Country: ES (occurrence: ES)
  Receive Date: 20160802
  Receipt Date: 20170623
  Transmission Date: 20170830
  Serious: Yes (Hospitalization)
  Sender: FDA-Public Use
  Company Number: ES-PFIZER INC-2016357928

PATIENT
  Age: 10 Year
  Sex: Male

DRUGS (2)
  1. PAMIDRONATE DISODIUM. [Suspect]
     Active Substance: PAMIDRONATE DISODIUM
     Indication: OSTEOGENESIS IMPERFECTA
     Dosage: 60 MG, EVERY 3 MONTHS
     Route: 042
     Dates: start: 200801
  2. CALCIUM-SANDOZ D3 [Concomitant]
     Indication: OSTEOGENESIS IMPERFECTA
     Dosage: 1 DF, 1X/DAY
     Route: 048
     Dates: start: 200801

REACTIONS (5)
  - Pyrexia [Recovered/Resolved]
  - Drug administered to patient of inappropriate age [Unknown]
  - Infusion site extravasation [Recovered/Resolved]
  - Vomiting [Recovered/Resolved]
  - Cellulitis [Recovered/Resolved]

NARRATIVE: CASE EVENT DATE: 20150507
